FAERS Safety Report 7094339-1 (Version None)
Quarter: 2010Q4

REPORT INFORMATION
  Report Type: 
  Country: None (occurrence: None)
  Receive Date: 20101102
  Receipt Date: 20101022
  Transmission Date: 20110411
  Serious: Yes (Hospitalization)
  Sender: FDA-Public Use
  Company Number: 2010MA001119

PATIENT
  Age: 79 Year
  Sex: Male

DRUGS (12)
  1. RAMIPRIL [Suspect]
     Indication: HYPERTENSION
     Dosage: 7.5 MG;QD;PO
     Route: 048
  2. FUROSEMIDE [Suspect]
     Indication: FLUID OVERLOAD
     Dosage: 40 MG;QD;PO
     Route: 048
  3. BENDROFLUMETHIAZIDE (BENDROFLUMETHIAZIDE) [Suspect]
     Indication: POLYURIA
     Dosage: 2.5 MG;QD;PO
     Route: 048
  4. ATORVASTATIN (ATORVASTATIN) [Suspect]
     Indication: HYPERCHOLESTEROLAEMIA
     Dosage: 20 MG;QD;PO
     Route: 048
     Dates: end: 20100712
  5. METFORMIN HCL [Suspect]
     Indication: DIABETES MELLITUS
     Dosage: 500 MG;TID;PO
     Route: 048
  6. OXYCODONE HCL [Suspect]
     Indication: BREAKTHROUGH PAIN
     Dosage: 10 MG;QID;PO
     Route: 048
     Dates: end: 20100712
  7. OXYCODONE HCL [Suspect]
     Indication: PHANTOM PAIN
     Dosage: 40 MG;BID;PO
     Route: 048
  8. ACETYLSALICYLIC ACID [Concomitant]
  9. PREGABALIN [Concomitant]
  10. PARACETAMOL [Concomitant]
  11. DOXYCYCLINE [Concomitant]
  12. PREV MEDS [Concomitant]

REACTIONS (16)
  - ACCIDENTAL OVERDOSE [None]
  - BLOOD CREATINE PHOSPHOKINASE INCREASED [None]
  - CONFUSIONAL STATE [None]
  - DEHYDRATION [None]
  - DRUG TOXICITY [None]
  - EMPYEMA [None]
  - ERYTHEMA [None]
  - FALL [None]
  - HYPOPHAGIA [None]
  - LUNG DISORDER [None]
  - MIOSIS [None]
  - PLEURAL CALCIFICATION [None]
  - RENAL FAILURE ACUTE [None]
  - SEPSIS [None]
  - SOMNOLENCE [None]
  - WOUND INFECTION STAPHYLOCOCCAL [None]
